FAERS Safety Report 5249470-X (Version None)
Quarter: 2007Q1

REPORT INFORMATION
  Report Type: 
  Country: None (occurrence: None)
  Receive Date: 20070228
  Receipt Date: 20061114
  Transmission Date: 20070707
  Serious: No
  Sender: FDA-Public Use
  Company Number: US-GLAXOSMITHKLINE-A0627482A

PATIENT
  Age: 56 Year
  Sex: Female

DRUGS (4)
  1. VALTREX [Suspect]
     Indication: ROCKY MOUNTAIN SPOTTED FEVER
     Dosage: 1G THREE TIMES PER DAY
     Route: 048
     Dates: start: 20060929
  2. DOXYCYCLINE [Concomitant]
  3. MS CONTIN [Concomitant]
  4. PERCOCET [Concomitant]

REACTIONS (3)
  - DRUG INEFFECTIVE [None]
  - HEADACHE [None]
  - VOMITING [None]
